FAERS Safety Report 19388757 (Version 1)
Quarter: 2021Q2

REPORT INFORMATION
  Report Type: Spontaneous
  Country: US (occurrence: US)
  Receive Date: 20210607
  Receipt Date: 20210607
  Transmission Date: 20210717
  Serious: Yes (Hospitalization, Disabling)
  Sender: FDA-Public Use
  Company Number: None

PATIENT
  Age: 82 Year
  Sex: Female

DRUGS (26)
  1. CAPECITABINE 500MG [Suspect]
     Active Substance: CAPECITABINE
     Indication: PANCREATIC CARCINOMA
     Dates: start: 20210415
  2. CHOLESTYRAMINE. [Concomitant]
     Active Substance: CHOLESTYRAMINE
  3. SUMATRIPTAN. [Concomitant]
     Active Substance: SUMATRIPTAN
  4. ATORVASTATIN [Concomitant]
     Active Substance: ATORVASTATIN
  5. FLUTICASONE. [Concomitant]
     Active Substance: FLUTICASONE
  6. OXYCODONE [Concomitant]
     Active Substance: OXYCODONE
  7. CHOLESTYRAMINE. [Concomitant]
     Active Substance: CHOLESTYRAMINE
  8. MONTELUKAST [Concomitant]
     Active Substance: MONTELUKAST SODIUM
  9. DICLOFENAC [Concomitant]
     Active Substance: DICLOFENAC
  10. PREGABALIN. [Concomitant]
     Active Substance: PREGABALIN
  11. RESTASIS [Concomitant]
     Active Substance: CYCLOSPORINE
  12. ALPRAZOLAM. [Concomitant]
     Active Substance: ALPRAZOLAM
  13. OMEPRAZOLE. [Concomitant]
     Active Substance: OMEPRAZOLE
  14. VITAMINS [Concomitant]
     Active Substance: VITAMINS
  15. DICLOFENAC [Concomitant]
     Active Substance: DICLOFENAC
  16. ESTRADIOL. [Concomitant]
     Active Substance: ESTRADIOL
  17. FLUTICASONE. [Concomitant]
     Active Substance: FLUTICASONE
  18. OXYCODONE [Concomitant]
     Active Substance: OXYCODONE
  19. ATORVASTATIN [Concomitant]
     Active Substance: ATORVASTATIN
  20. ALBUTEROL. [Concomitant]
     Active Substance: ALBUTEROL
  21. ONDANSETRON [Concomitant]
     Active Substance: ONDANSETRON
  22. ESTRADIOL. [Concomitant]
     Active Substance: ESTRADIOL
  23. ONDANSETRON [Concomitant]
     Active Substance: ONDANSETRON
  24. ALBUTEROL. [Concomitant]
     Active Substance: ALBUTEROL
  25. ALPRAZOLAM. [Concomitant]
     Active Substance: ALPRAZOLAM
  26. MONTELUKAST [Concomitant]
     Active Substance: MONTELUKAST SODIUM

REACTIONS (3)
  - Abdominal pain [None]
  - Headache [None]
  - Vomiting [None]

NARRATIVE: CASE EVENT DATE: 20210511
